FAERS Safety Report 24031412 (Version 2)
Quarter: 2024Q4

REPORT INFORMATION
  Report Type: Spontaneous
  Country: CA (occurrence: CA)
  Receive Date: 20240629
  Receipt Date: 20241218
  Transmission Date: 20250114
  Serious: Yes (Hospitalization)
  Sender: CELLTRION
  Company Number: CA-PFIZER INC-202400107888

PATIENT

DRUGS (7)
  1. INFLECTRA [Suspect]
     Active Substance: INFLIXIMAB-DYYB
     Indication: Colitis ulcerative
     Dosage: 10 MG/KG, Q 7 WEEKS ROUND TO NEAREST HUNDRED
     Route: 042
     Dates: start: 20220421, end: 20230213
  2. INFLECTRA [Suspect]
     Active Substance: INFLIXIMAB-DYYB
     Dosage: 10 MG/KG, WEEKS 0,2,6 THE Q 7 WEEKS
     Route: 042
     Dates: start: 20230720
  3. INFLECTRA [Suspect]
     Active Substance: INFLIXIMAB-DYYB
     Dosage: 10 MG/KG, WEEKS 0,2,6 THE Q 7 WEEKS
     Route: 042
     Dates: start: 20240311
  4. INFLECTRA [Suspect]
     Active Substance: INFLIXIMAB-DYYB
     Dosage: 10 MG/KG, WEEKS 0,2,6 THE Q 7 WEEKS
     Route: 042
     Dates: start: 20240425
  5. INFLECTRA [Suspect]
     Active Substance: INFLIXIMAB-DYYB
     Dosage: 1400 MG EVERY 7 WEEKS
     Route: 042
     Dates: start: 20240621
  6. INFLECTRA [Suspect]
     Active Substance: INFLIXIMAB-DYYB
     Dosage: 10 MG/KG, WEEKS 0,2,6 THE Q 7 WEEKS
     Route: 042
     Dates: start: 20240812
  7. INFLECTRA [Suspect]
     Active Substance: INFLIXIMAB-DYYB
     Dosage: 1500 MG, AFTER 17 WEEKS (10MG/KG, WEEKS 0,2,6 THE Q 7 WEEKS)
     Route: 042
     Dates: start: 20241209

REACTIONS (3)
  - Gastrointestinal disorder [Recovered/Resolved]
  - Urinary tract infection [Not Recovered/Not Resolved]
  - Condition aggravated [Recovering/Resolving]

NARRATIVE: CASE EVENT DATE: 20240101
